FAERS Safety Report 4377583-3 (Version None)
Quarter: 2004Q2

REPORT INFORMATION
  Report Type: 
  Country: None (occurrence: None)
  Receive Date: 20040601
  Receipt Date: 20040127
  Transmission Date: 20050107
  Serious: No
  Sender: FDA-Public Use
  Company Number: WAES 0401USA01990

PATIENT
  Age: 63 Year
  Sex: Female

DRUGS (1)
  1. ZETIA [Suspect]
     Indication: HYPERCHOLESTEROLAEMIA
     Dosage: 10 MG/DAILY/PO
     Route: 048

REACTIONS (2)
  - HEADACHE [None]
  - MUSCULAR WEAKNESS [None]
